FAERS Safety Report 23125227 (Version 1)
Quarter: 2023Q4

REPORT INFORMATION
  Report Type: Spontaneous
  Country: US (occurrence: None)
  Receive Date: 20231025
  Receipt Date: 20231025
  Transmission Date: 20240110
  Serious: Yes (Other)
  Sender: FDA-Public Use
  Company Number: None

PATIENT
  Age: 49 Year
  Sex: Male

DRUGS (4)
  1. EVEROLIMUS [Suspect]
     Active Substance: EVEROLIMUS
     Indication: Renal transplant
     Dosage: OTHER FREQUENCY : AM/PM ?STRENGTH: 0.5MG/0.75MG?
     Route: 048
     Dates: start: 202101
  2. EVEROLIMUS [Suspect]
     Active Substance: EVEROLIMUS
     Dosage: OTHER FREQUENCY : PM;?
     Route: 048
     Dates: start: 202101
  3. MYCOPHENOLIC ACID [Suspect]
     Active Substance: MYCOPHENOLIC ACID
     Indication: Renal transplant
     Dosage: OTHER FREQUENCY : AM/PM?DOSE: 0.5MG 0.75MG?
     Route: 048
     Dates: start: 202101
  4. MYCOPHENOLIC ACID [Suspect]
     Active Substance: MYCOPHENOLIC ACID
     Dosage: OTHER FREQUENCY : PM;?
     Route: 048
     Dates: start: 202101

REACTIONS (2)
  - Colorectal cancer [None]
  - Thyroid cancer [None]

NARRATIVE: CASE EVENT DATE: 20220601
